FAERS Safety Report 11494669 (Version 1)
Quarter: 2015Q3

REPORT INFORMATION
  Report Type: Spontaneous
  Country: US (occurrence: US)
  Receive Date: 20150911
  Receipt Date: 20150911
  Transmission Date: 20151125
  Serious: No
  Sender: FDA-Public Use
  Company Number: US-ROCHE-799650

PATIENT
  Sex: Male

DRUGS (3)
  1. RIBAVIRIN. [Suspect]
     Active Substance: RIBAVIRIN
     Indication: HEPATITIS C
     Dosage: FREQUENCY: DAILY
     Route: 065
     Dates: start: 20110826, end: 20111125
  2. PEGASYS [Suspect]
     Active Substance: PEGINTERFERON ALFA-2A
     Indication: HEPATITIS C
     Route: 065
     Dates: start: 20110826, end: 20111125
  3. VICTRELIS [Concomitant]
     Active Substance: BOCEPREVIR
     Route: 065
     Dates: start: 20110923, end: 20111125

REACTIONS (2)
  - Pollakiuria [Unknown]
  - Retinal exudates [Unknown]
